FAERS Safety Report 14125793 (Version 3)
Quarter: 2017Q4

REPORT INFORMATION
  Report Type: Spontaneous
  Country: GB (occurrence: GB)
  Receive Date: 20171025
  Receipt Date: 20171107
  Transmission Date: 20180321
  Serious: Yes (Hospitalization, Other)
  Sender: FDA-Public Use
  Company Number: GB-ASTRAZENECA-2017SF08213

PATIENT
  Age: 75 Year
  Sex: Female

DRUGS (1)
  1. EKLIRA [Suspect]
     Active Substance: ACLIDINIUM BROMIDE
     Indication: PROPHYLAXIS
     Route: 055
     Dates: start: 20170228

REACTIONS (5)
  - Pneumonia [Recovering/Resolving]
  - Dyspnoea [Unknown]
  - Device issue [Unknown]
  - Underdose [Recovering/Resolving]
  - Pneumothorax [Unknown]

NARRATIVE: CASE EVENT DATE: 20171017
